FAERS Safety Report 25180711 (Version 2)
Quarter: 2025Q2

REPORT INFORMATION
  Report Type: Report from Study
  Country: US (occurrence: US)
  Receive Date: 20250409
  Receipt Date: 20250415
  Transmission Date: 20250716
  Serious: Yes (Hospitalization, Other)
  Sender: IOVANCE BIOTHERAPEUTICS
  Company Number: US-SYNEOS-2022LN000029

PATIENT
  Age: 71 Year
  Sex: Female

DRUGS (18)
  1. ALDESLEUKIN [Suspect]
     Active Substance: ALDESLEUKIN
     Indication: Adenocarcinoma
     Route: 042
     Dates: start: 20220504, end: 20220506
  2. LIFILEUCEL [Suspect]
     Active Substance: LIFILEUCEL
     Indication: Adenocarcinoma
     Route: 042
     Dates: start: 20220503, end: 20220503
  3. CYCLOPHOSPHAMIDE [Suspect]
     Active Substance: CYCLOPHOSPHAMIDE
     Indication: Adenocarcinoma
     Route: 042
     Dates: start: 20220428, end: 20220429
  4. FLUDARABINE [Suspect]
     Active Substance: FLUDARABINE PHOSPHATE
     Indication: Adenocarcinoma
     Route: 042
     Dates: start: 20220428, end: 20220502
  5. MESNA [Concomitant]
     Active Substance: MESNA
     Indication: Adenocarcinoma
     Route: 042
     Dates: start: 20220428, end: 20220429
  6. MESNA [Concomitant]
     Active Substance: MESNA
     Indication: Supportive care
  7. FLOVENT HFA [Concomitant]
     Active Substance: FLUTICASONE PROPIONATE
     Indication: Asthma
     Dates: start: 2002
  8. ALBUTEROL SULFATE [Concomitant]
     Active Substance: ALBUTEROL SULFATE
     Indication: Asthma
     Dates: start: 2002
  9. LOTREL [Concomitant]
     Active Substance: AMLODIPINE BESYLATE\BENAZEPRIL HYDROCHLORIDE
     Indication: Hypertension
     Route: 048
     Dates: start: 2012
  10. METOPROLOL SUCCINATE [Concomitant]
     Active Substance: METOPROLOL SUCCINATE
     Indication: Hypertension
     Route: 048
     Dates: start: 20220317
  11. PEPCID [Concomitant]
     Active Substance: FAMOTIDINE
     Indication: Gastrooesophageal reflux disease
     Route: 048
     Dates: start: 2015
  12. MORPHINE [Concomitant]
     Active Substance: MORPHINE
     Indication: Groin pain
     Route: 048
     Dates: start: 20220201
  13. NORCO [Concomitant]
     Active Substance: ACETAMINOPHEN\HYDROCODONE BITARTRATE
     Indication: Groin pain
     Route: 048
     Dates: start: 20220201
  14. LIORESAL [Concomitant]
     Active Substance: BACLOFEN
     Indication: Back pain
     Route: 048
     Dates: start: 20220311
  15. MIRALAX [Concomitant]
     Active Substance: POLYETHYLENE GLYCOL 3350
     Indication: Constipation
     Route: 048
     Dates: start: 20220114
  16. DULCOLAX (BISACODYL) [Concomitant]
     Active Substance: BISACODYL
     Indication: Constipation
     Route: 048
     Dates: start: 20220211
  17. SENOKOT [Concomitant]
     Active Substance: SENNOSIDES
     Indication: Constipation
     Route: 048
     Dates: start: 20220211
  18. ZOVIRAX [Concomitant]
     Active Substance: ACYCLOVIR
     Indication: Antiviral treatment
     Route: 048
     Dates: start: 20220407, end: 20220412

REACTIONS (3)
  - Neutrophil count decreased [Recovered/Resolved]
  - Pyrexia [Recovered/Resolved]
  - Weight decreased [Recovered/Resolved]

NARRATIVE: CASE EVENT DATE: 20220429
